FAERS Safety Report 16544792 (Version 4)
Quarter: 2019Q3

REPORT INFORMATION
  Report Type: Report from Study
  Country: US (occurrence: US)
  Receive Date: 20190709
  Receipt Date: 20190919
  Transmission Date: 20191004
  Serious: Yes (Other)
  Sender: FDA-Public Use
  Company Number: US-JNJFOC-20190544528

PATIENT
  Sex: Male

DRUGS (22)
  1. ASPIRIN. [Concomitant]
     Active Substance: ASPIRIN
  2. OMEPRAZOLE. [Concomitant]
     Active Substance: OMEPRAZOLE
  3. IMBRUVICA [Suspect]
     Active Substance: IBRUTINIB
     Route: 048
     Dates: start: 20190514
  4. IMBRUVICA [Suspect]
     Active Substance: IBRUTINIB
     Route: 048
     Dates: start: 20190519
  5. MSM [Concomitant]
     Active Substance: DIMETHYL SULFONE
  6. CURCUMA LONGA RHIZOME [Concomitant]
     Active Substance: HERBALS\TURMERIC
  7. METOPROLOL SUCCINATE. [Concomitant]
     Active Substance: METOPROLOL SUCCINATE
  8. NITROGLYCERIN. [Concomitant]
     Active Substance: NITROGLYCERIN
  9. MOBIC [Concomitant]
     Active Substance: MELOXICAM
  10. ZINGIBER OFFICINALE RHIZOME [Concomitant]
  11. MYRBETRIQ [Concomitant]
     Active Substance: MIRABEGRON
  12. IMBRUVICA [Suspect]
     Active Substance: IBRUTINIB
     Route: 048
     Dates: start: 20190515
  13. LYCOPENE [Concomitant]
     Active Substance: LYCOPENE
  14. COENZYME Q10 [Concomitant]
     Active Substance: UBIDECARENONE
  15. IMBRUVICA [Suspect]
     Active Substance: IBRUTINIB
     Indication: CHRONIC LYMPHOCYTIC LEUKAEMIA
     Route: 048
     Dates: start: 20190509
  16. MELATONIN [Concomitant]
     Active Substance: MELATONIN
  17. FLOMAX [Concomitant]
     Active Substance: TAMSULOSIN HYDROCHLORIDE
  18. FERROUS SULFATE. [Concomitant]
     Active Substance: FERROUS SULFATE
  19. GLUCOSAMINE CHONDROITIN COMPLEX    /06278301/ [Concomitant]
  20. SAW PALMETTO                       /00833501/ [Concomitant]
     Active Substance: HERBALS\SAW PALMETTO
  21. FINASTERIDE. [Concomitant]
     Active Substance: FINASTERIDE
  22. CRESTOR [Concomitant]
     Active Substance: ROSUVASTATIN CALCIUM

REACTIONS (11)
  - Synovial fluid white blood cells positive [Unknown]
  - Muscle spasms [Recovering/Resolving]
  - Diarrhoea [Not Recovered/Not Resolved]
  - Abdominal discomfort [Unknown]
  - Peripheral swelling [Unknown]
  - Joint swelling [Unknown]
  - Dizziness [Unknown]
  - Rash [Unknown]
  - Skin cancer [Recovered/Resolved]
  - Nausea [Unknown]
  - Abdominal pain upper [Recovering/Resolving]

NARRATIVE: CASE EVENT DATE: 2019
